FAERS Safety Report 17578501 (Version 2)
Quarter: 2020Q2

REPORT INFORMATION
  Report Type: Spontaneous
  Country: US (occurrence: US)
  Receive Date: 20200324
  Receipt Date: 20200402
  Transmission Date: 20200713
  Serious: Yes (Other)
  Sender: FDA-Public Use
  Company Number: US-PFIZER INC-2020072150

PATIENT
  Age: 50 Year
  Sex: Female
  Weight: 69.85 kg

DRUGS (5)
  1. ROBITUSSIN SEVERE MULTI-SYMPTOM COUGH COLD FLU [Suspect]
     Active Substance: ACETAMINOPHEN\DEXTROMETHORPHAN HYDROBROMIDE\GUAIFENESIN\PHENYLEPHRINE HYDROCHLORIDE
     Indication: SINUSITIS
     Dosage: 20 MG, TWICE A DAY
     Dates: start: 20200213, end: 20200213
  2. ROBITUSSIN SEVERE MULTI-SYMPTOM COUGH COLD FLU [Suspect]
     Active Substance: ACETAMINOPHEN\DEXTROMETHORPHAN HYDROBROMIDE\GUAIFENESIN\PHENYLEPHRINE HYDROCHLORIDE
     Indication: NASAL CONGESTION
  3. ROBITUSSIN SEVERE MULTI-SYMPTOM COUGH COLD FLU [Suspect]
     Active Substance: ACETAMINOPHEN\DEXTROMETHORPHAN HYDROBROMIDE\GUAIFENESIN\PHENYLEPHRINE HYDROCHLORIDE
     Indication: NASOPHARYNGITIS
     Dosage: 20 MG, ONCE A DAY (20 MG 1X)
     Dates: start: 20200214, end: 20200214
  4. ZYRTEC [Concomitant]
     Active Substance: CETIRIZINE HYDROCHLORIDE
     Indication: HYPERSENSITIVITY
     Dosage: UNK, DAILY
  5. SINGULAIR [Concomitant]
     Active Substance: MONTELUKAST SODIUM
     Indication: ASTHMA
     Dosage: UNK, DAILY

REACTIONS (6)
  - Product odour abnormal [Unknown]
  - Product taste abnormal [Unknown]
  - Vomiting [Unknown]
  - Food poisoning [Not Recovered/Not Resolved]
  - Diarrhoea [Not Recovered/Not Resolved]
  - Malaise [Not Recovered/Not Resolved]

NARRATIVE: CASE EVENT DATE: 20200213
